FAERS Safety Report 4452789-3 (Version None)
Quarter: 2004Q3

REPORT INFORMATION
  Report Type: 
  Country: None (occurrence: None)
  Receive Date: 20040916
  Receipt Date: 20040906
  Transmission Date: 20050211
  Serious: No
  Sender: FDA-Public Use
  Company Number: 2004-120117-NL

PATIENT
  Age: 82 Year
  Sex: Male

DRUGS (7)
  1. MIRTAZAPINE [Suspect]
     Indication: DEPRESSION
     Dosage: 15 MG ORAL
     Route: 048
     Dates: start: 20040808, end: 20040818
  2. DIGOXIN [Concomitant]
  3. ACETYLSALICYLIC ACID [Concomitant]
  4. CHLORMETHIAZOLE [Concomitant]
  5. FOLIC ACID [Concomitant]
  6. CHLORPROMAZINE [Concomitant]
  7. PHENOXYMETHYLPENICILLIN [Concomitant]

REACTIONS (3)
  - PURPURA [None]
  - SKIN ULCER [None]
  - VASCULITIC RASH [None]
